FAERS Safety Report 10268745 (Version 6)
Quarter: 2016Q2

REPORT INFORMATION
  Report Type: Spontaneous
  Country: US (occurrence: US)
  Receive Date: 20140630
  Receipt Date: 20160419
  Transmission Date: 20160815
  Serious: Yes (Hospitalization, Other)
  Sender: FDA-Public Use
  Company Number: US-GLAXOSMITHKLINE-A0930084A

PATIENT
  Age: 65 Year
  Sex: Female

DRUGS (4)
  1. VALTREX [Suspect]
     Active Substance: VALACYCLOVIR HYDROCHLORIDE
     Indication: ANTIVIRAL PROPHYLAXIS
  2. VALTREX [Suspect]
     Active Substance: VALACYCLOVIR HYDROCHLORIDE
     Indication: OPHTHALMIC HERPES ZOSTER
  3. VALTREX [Suspect]
     Active Substance: VALACYCLOVIR HYDROCHLORIDE
     Indication: ACUTE ZONAL OCCULT OUTER RETINOPATHY
  4. VALTREX [Suspect]
     Active Substance: VALACYCLOVIR HYDROCHLORIDE
     Indication: EYE DISORDER
     Dosage: 500 MGFOLLOW-UP, 1 GM IN A.M., 500 MG IN P.M. 2ND FOLLOW-UP, 500 MG AND 1 G, UNKNOWN DOSING SCH[...]
     Route: 048
     Dates: start: 20110301

REACTIONS (33)
  - Headache [Recovered/Resolved]
  - Visual impairment [Unknown]
  - Central nervous system lesion [Unknown]
  - Inflammation [Unknown]
  - Multiple sclerosis [Unknown]
  - Vasculitis cerebral [Unknown]
  - Hospitalisation [Unknown]
  - Hand fracture [Unknown]
  - Condition aggravated [Recovering/Resolving]
  - Post-traumatic neck syndrome [Unknown]
  - Limb injury [Unknown]
  - Thrombosis [Unknown]
  - Uveitis [Unknown]
  - Fall [Unknown]
  - Acute zonal occult outer retinopathy [Not Recovered/Not Resolved]
  - Therapeutic response unexpected [Unknown]
  - Ligament sprain [Unknown]
  - Malaise [Unknown]
  - Upper limb fracture [Unknown]
  - Vomiting [Unknown]
  - Dizziness [Unknown]
  - Ill-defined disorder [Unknown]
  - Adverse drug reaction [Unknown]
  - Pain in extremity [Unknown]
  - Hallucination, visual [Unknown]
  - Blindness [Not Recovered/Not Resolved]
  - Skin abrasion [Unknown]
  - Logorrhoea [Unknown]
  - Transient ischaemic attack [Unknown]
  - Vasculitis [Unknown]
  - Emergency care examination [Recovering/Resolving]
  - Concussion [Recovering/Resolving]
  - Injury [Unknown]

NARRATIVE: CASE EVENT DATE: 20140505
